FAERS Safety Report 13750726 (Version 1)
Quarter: 2017Q3

REPORT INFORMATION
  Report Type: Spontaneous
  Country: US (occurrence: US)
  Receive Date: 20170713
  Receipt Date: 20170713
  Transmission Date: 20171127
  Serious: No
  Sender: FDA-Public Use
  Company Number: US-ASTELLAS-2017US003700

PATIENT
  Age: 78 Year
  Sex: Female

DRUGS (3)
  1. MYRBETRIQ [Suspect]
     Active Substance: MIRABEGRON
     Indication: CONSTIPATION
  2. MYRBETRIQ [Suspect]
     Active Substance: MIRABEGRON
     Indication: EYE HAEMORRHAGE
     Route: 065
     Dates: start: 20170126, end: 20170213
  3. ZOLPIDEM [Concomitant]
     Active Substance: ZOLPIDEM\ZOLPIDEM TARTRATE
     Indication: PRODUCT USED FOR UNKNOWN INDICATION
     Route: 065

REACTIONS (3)
  - Ocular hyperaemia [Recovered/Resolved]
  - Off label use [Unknown]
  - Intentional product misuse [Unknown]
